FAERS Safety Report 9605636 (Version 2)
Quarter: 2014Q1

REPORT INFORMATION
  Report Type: Report from Study
  Country: US (occurrence: US)
  Receive Date: 20131008
  Receipt Date: 20140326
  Transmission Date: 20141002
  Serious: Yes (Hospitalization, Other)
  Sender: FDA-Public Use
  Company Number: US-UCBSA-099299

PATIENT
  Age: 22 Year
  Sex: Male

DRUGS (16)
  1. CIMZIA [Suspect]
     Indication: CROHN^S DISEASE
     Route: 058
     Dates: start: 20130214
  2. CIPRO [Concomitant]
     Indication: ENTEROCUTANEOUS FISTULA
     Dates: start: 20121206, end: 20130217
  3. CIPRO [Concomitant]
     Indication: CROHN^S DISEASE
     Dates: start: 20121206, end: 20130217
  4. CIPRO [Concomitant]
     Indication: ENTEROCUTANEOUS FISTULA
     Route: 048
     Dates: start: 20130302
  5. CIPRO [Concomitant]
     Indication: CROHN^S DISEASE
     Route: 048
     Dates: start: 20130302
  6. FLAGYL [Concomitant]
     Indication: ENTEROCUTANEOUS FISTULA
     Dates: start: 20121206, end: 201310
  7. FLAGYL [Concomitant]
     Indication: CROHN^S DISEASE
     Dates: start: 20121206, end: 201310
  8. FLAGYL [Concomitant]
     Indication: ENTEROCUTANEOUS FISTULA
     Route: 048
     Dates: start: 20120326
  9. FLAGYL [Concomitant]
     Indication: CROHN^S DISEASE
     Route: 048
     Dates: start: 20120326
  10. FAMOTIDINE [Concomitant]
     Indication: PROPHYLAXIS
     Route: 048
  11. MIRTAZAPINE [Concomitant]
     Indication: DEPRESSION
     Dosage: DAILY DOSE: 15 MG
     Route: 048
  12. MULTIVITAMIN [Concomitant]
     Indication: VITAMIN SUPPLEMENTATION
     Route: 048
     Dates: start: 2013
  13. NYSTATIN [Concomitant]
     Indication: RASH
     Dosage: 100,0000 UNIT POWDER
     Dates: start: 2013
  14. TRAMADOL [Concomitant]
     Indication: PAIN
     Dosage: 50 MG  1-2 TABLETS PRN TID
     Route: 048
  15. URSODIOL [Concomitant]
     Indication: BILIARY COLIC
     Route: 048
     Dates: start: 201212
  16. ZOFRAN [Concomitant]
     Indication: NAUSEA
     Dosage: 4 MG BID PRN
     Route: 048
     Dates: start: 20130709

REACTIONS (2)
  - Enterocutaneous fistula [Recovered/Resolved]
  - Herpes zoster [Recovered/Resolved]
